FAERS Safety Report 16207082 (Version 10)
Quarter: 2019Q3

REPORT INFORMATION
  Report Type: Report from Study
  Country: US (occurrence: US)
  Receive Date: 20190417
  Receipt Date: 20190710
  Transmission Date: 20191004
  Serious: Yes (Other)
  Sender: FDA-Public Use
  Company Number: US-GILEAD-2019-0402513

PATIENT
  Age: 60 Year
  Sex: Female

DRUGS (5)
  1. AMBRISENTAN [Suspect]
     Active Substance: AMBRISENTAN
     Indication: PULMONARY ARTERIAL HYPERTENSION
     Dosage: 5 MG, QD
     Route: 048
     Dates: start: 20150826
  2. UPTRAVI [Concomitant]
     Active Substance: SELEXIPAG
     Dosage: 1200 UG, BID
     Route: 065
  3. UPTRAVI [Concomitant]
     Active Substance: SELEXIPAG
     Indication: PRODUCT USED FOR UNKNOWN INDICATION
     Dosage: 1000MCG, BID
     Route: 065
  4. OXYGEN. [Concomitant]
     Active Substance: OXYGEN
  5. UPTRAVI [Concomitant]
     Active Substance: SELEXIPAG
     Dosage: 1000 UG, BID
     Route: 065

REACTIONS (16)
  - Musculoskeletal pain [Not Recovered/Not Resolved]
  - Muscle spasms [Not Recovered/Not Resolved]
  - Decreased appetite [Not Recovered/Not Resolved]
  - Dialysis [Unknown]
  - Dyspnoea [Recovered/Resolved]
  - Pain in extremity [Not Recovered/Not Resolved]
  - Weight decreased [Not Recovered/Not Resolved]
  - Catheterisation cardiac [Unknown]
  - Fatigue [Not Recovered/Not Resolved]
  - Headache [Not Recovered/Not Resolved]
  - Diarrhoea [Not Recovered/Not Resolved]
  - Renal transplant [Unknown]
  - Myalgia [Not Recovered/Not Resolved]
  - Insomnia [Not Recovered/Not Resolved]
  - Flushing [Not Recovered/Not Resolved]
  - Hypotension [Unknown]

NARRATIVE: CASE EVENT DATE: 20190614
